FAERS Safety Report 18630618 (Version 2)
Quarter: 2020Q4

REPORT INFORMATION
  Report Type: Spontaneous
  Country: JP (occurrence: JP)
  Receive Date: 20201218
  Receipt Date: 20201219
  Transmission Date: 20210114
  Serious: Yes (Other)
  Sender: FDA-Public Use
  Company Number: JP-AMGEN-JPNSP2020096597

PATIENT
  Age: 48 Year
  Sex: Female

DRUGS (5)
  1. KYPROLIS [Suspect]
     Active Substance: CARFILZOMIB
     Indication: PLASMA CELL MYELOMA
     Dosage: 30.46 MILLIGRAM, QD (EVERYDAY)
     Route: 041
     Dates: start: 20200520, end: 20200521
  2. KYPROLIS [Suspect]
     Active Substance: CARFILZOMIB
     Dosage: 85.288 MILLIGRAM, QD
     Route: 041
     Dates: start: 20200527, end: 20200527
  3. DECADRON (DEXAMETHASONE SODIUM PHOSPHATE) [Concomitant]
     Active Substance: DEXAMETHASONE SODIUM PHOSPHATE
     Indication: PLASMA CELL MYELOMA
     Dosage: UNK
     Route: 065
     Dates: start: 20200520, end: 20200527
  4. DAIPHEN [Concomitant]
     Active Substance: SULFAMETHOXAZOLE\TRIMETHOPRIM
     Dosage: UNK
     Route: 065
  5. FAMVIR [Concomitant]
     Active Substance: FAMCICLOVIR
     Dosage: UNK
     Route: 065

REACTIONS (3)
  - Nephropathy toxic [Recovering/Resolving]
  - Tumour lysis syndrome [Unknown]
  - Hepatic enzyme increased [Unknown]

NARRATIVE: CASE EVENT DATE: 20200528
